FAERS Safety Report 9846109 (Version 2)
Quarter: 2014Q2

REPORT INFORMATION
  Report Type: Spontaneous
  Country: IT (occurrence: IT)
  Receive Date: 20140127
  Receipt Date: 20140408
  Transmission Date: 20141212
  Serious: Yes (Hospitalization)
  Sender: FDA-Public Use
  Company Number: IT-MYLANLABS-2014S1000939

PATIENT
  Age: 97 Year
  Sex: Female

DRUGS (1)
  1. AMIODARONE [Suspect]
     Indication: PRODUCT USED FOR UNKNOWN INDICATION
     Route: 048
     Dates: start: 20121007, end: 20121007

REACTIONS (3)
  - Dry mouth [Recovering/Resolving]
  - Incorrect dose administered [Recovering/Resolving]
  - Medication error [Recovering/Resolving]
